FAERS Safety Report 10255744 (Version 1)
Quarter: 2014Q2

REPORT INFORMATION
  Report Type: Spontaneous
  Country: US (occurrence: None)
  Receive Date: 20140620
  Receipt Date: 20140620
  Transmission Date: 20141212
  Serious: Yes (Other)
  Sender: FDA-Public Use
  Company Number: UNT-2014-002201

PATIENT
  Age: 72 Year
  Sex: Male
  Weight: 74.8 kg

DRUGS (3)
  1. TYVASO [Suspect]
     Indication: PULMONARY ARTERIAL HYPERTENSION
     Route: 055
     Dates: start: 20120426
  2. LETAIRIS (AMBRISENTAN) [Concomitant]
  3. REVATIO (SILDENAFIL CITRATE) [Concomitant]

REACTIONS (1)
  - Pharyngeal oedema [None]
